FAERS Safety Report 9485977 (Version 1)
Quarter: 2013Q3

REPORT INFORMATION
  Report Type: Spontaneous
  Country: US (occurrence: None)
  Receive Date: 20130827
  Receipt Date: 20130827
  Transmission Date: 20140515
  Serious: Yes (Other)
  Sender: FDA-Public Use
  Company Number: None

PATIENT
  Age: 37 Year
  Sex: Male

DRUGS (1)
  1. TECFIDERA [Suspect]
     Indication: MULTIPLE SCLEROSIS
     Dosage: 1   BID  ORAL
     Route: 048
     Dates: start: 20130703, end: 20130822

REACTIONS (7)
  - Tremor [None]
  - Hypoaesthesia [None]
  - Paralysis [None]
  - Insomnia [None]
  - Fatigue [None]
  - Flushing [None]
  - Abdominal pain upper [None]
